FAERS Safety Report 9785419 (Version 2)
Quarter: 2013Q4

REPORT INFORMATION
  Report Type: Spontaneous
  Country: US (occurrence: None)
  Receive Date: 20131224
  Receipt Date: 20131231
  Transmission Date: 20140711
  Serious: Yes (Hospitalization)
  Sender: FDA-Public Use
  Company Number: AUR-APL-2013-10662

PATIENT
  Age: 38 Year
  Sex: Female

DRUGS (1)
  1. OXYCODONE+PARACETAMOL [Suspect]
     Indication: PRODUCT USED FOR UNKNOWN INDICATION
     Dosage: INTRA NASAL

REACTIONS (9)
  - Pharyngitis [None]
  - Sinusitis [None]
  - Nausea [None]
  - Dysphagia [None]
  - Drug abuse [None]
  - Incorrect route of drug administration [None]
  - Toxicity to various agents [None]
  - Wrong technique in drug usage process [None]
  - Analgesic drug level increased [None]
